FAERS Safety Report 6117536-8 (Version None)
Quarter: 2009Q1

REPORT INFORMATION
  Report Type: 
  Country: None (occurrence: None)
  Receive Date: 20090314
  Receipt Date: 20090120
  Transmission Date: 20090719
  Serious: No
  Sender: FDA-Public Use
  Company Number: US-ABBOTT-09P-163-0499124-00

PATIENT
  Sex: Male

DRUGS (1)
  1. HUMIRA [Suspect]
     Indication: PSORIATIC ARTHROPATHY
     Dates: start: 20081028

REACTIONS (5)
  - ERYTHEMA [None]
  - EYE SWELLING [None]
  - PSORIATIC ARTHROPATHY [None]
  - RASH [None]
  - STRESS [None]
